FAERS Safety Report 24996207 (Version 1)
Quarter: 2025Q1

REPORT INFORMATION
  Report Type: Report from Study
  Country: US (occurrence: US)
  Receive Date: 20250221
  Receipt Date: 20250221
  Transmission Date: 20250409
  Serious: Yes (Hospitalization)
  Sender: ABBVIE
  Company Number: US-ABBVIE-6142515

PATIENT
  Age: 36 Year
  Sex: Male

DRUGS (1)
  1. HUMIRA [Suspect]
     Active Substance: ADALIMUMAB
     Indication: Psoriasis
     Route: 058
     Dates: start: 2016, end: 2018

REACTIONS (3)
  - Gastrointestinal wall thickening [Unknown]
  - Oesophageal wall hypertrophy [Unknown]
  - Intestinal barrier dysfunction [Unknown]

NARRATIVE: CASE EVENT DATE: 20250103
